FAERS Safety Report 8923443 (Version 2)
Quarter: 2013Q1

REPORT INFORMATION
  Report Type: Spontaneous
  Country: US (occurrence: US)
  Receive Date: 20121123
  Receipt Date: 20130118
  Transmission Date: 20140127
  Serious: No
  Sender: FDA-Public Use
  Company Number: US-JNJFOC-20121104757

PATIENT
  Sex: Male
  Weight: 97.98 kg

DRUGS (10)
  1. DURAGESIC [Suspect]
     Indication: SURGERY
     Route: 062
  2. DURAGESIC [Suspect]
     Indication: SURGERY
     Route: 062
     Dates: start: 19990818
  3. DURAGESIC [Suspect]
     Indication: INTERVERTEBRAL DISC DEGENERATION
     Route: 062
  4. DURAGESIC [Suspect]
     Indication: INTERVERTEBRAL DISC DEGENERATION
     Route: 062
     Dates: start: 19990818
  5. DURAGESIC [Suspect]
     Indication: ARTHRITIS
     Route: 062
  6. DURAGESIC [Suspect]
     Indication: ARTHRITIS
     Route: 062
     Dates: start: 19990818
  7. UNSPECIFIED FENTANYL TRANSDERMAL SYSTEM [Suspect]
     Indication: SURGERY
     Route: 062
  8. UNSPECIFIED FENTANYL TRANSDERMAL SYSTEM [Suspect]
     Indication: INTERVERTEBRAL DISC DEGENERATION
     Route: 062
  9. UNSPECIFIED FENTANYL TRANSDERMAL SYSTEM [Suspect]
     Indication: ARTHRITIS
     Route: 062
  10. HYDROCODONE [Concomitant]
     Route: 048

REACTIONS (6)
  - Confusional state [Not Recovered/Not Resolved]
  - Drug ineffective [Recovered/Resolved]
  - Application site pruritus [Recovered/Resolved]
  - Medication error [Not Recovered/Not Resolved]
  - Dermatitis contact [Recovered/Resolved]
  - Product packaging quantity issue [Unknown]
